FAERS Safety Report 7158998-7 (Version None)
Quarter: 2010Q4

REPORT INFORMATION
  Report Type: 
  Country: None (occurrence: None)
  Receive Date: 20101130
  Receipt Date: 20101116
  Transmission Date: 20110411
  Serious: Yes (Death, Hospitalization)
  Sender: FDA-Public Use
  Company Number: 2010MA004698

PATIENT
  Age: 67 Year
  Sex: Male

DRUGS (5)
  1. EPIRUBICIN HYDROCHLORIDE [Suspect]
     Indication: GASTROOESOPHAGEAL CANCER
     Dosage: 50 MG;TIW;IV
     Route: 042
     Dates: start: 20100219, end: 20100319
  2. CISPLATIN [Suspect]
     Indication: GASTROOESOPHAGEAL CANCER
     Dosage: 60 MG;TIW;IV
     Route: 042
     Dates: start: 20100219, end: 20100319
  3. XELODA [Suspect]
     Indication: GASTROOESOPHAGEAL CANCER
     Dosage: 625 MG;BID;PO
     Route: 048
     Dates: start: 20100219, end: 20100324
  4. CON MEDS [Concomitant]
  5. PREV MEDS [Concomitant]

REACTIONS (12)
  - ARTERIOSCLEROSIS CORONARY ARTERY [None]
  - ASPERGILLOSIS [None]
  - CARDIO-RESPIRATORY ARREST [None]
  - CORONARY ARTERY OCCLUSION [None]
  - DIARRHOEA [None]
  - DYSPHAGIA [None]
  - ILEAL ULCER [None]
  - JEJUNAL ULCER [None]
  - LETHARGY [None]
  - LEUKOPENIA [None]
  - MALIGNANT NEOPLASM PROGRESSION [None]
  - NEUTROPENIA [None]
